FAERS Safety Report 26126690 (Version 1)
Quarter: 2025Q4

REPORT INFORMATION
  Report Type: Spontaneous
  Country: US (occurrence: US)
  Receive Date: 20251205
  Receipt Date: 20251205
  Transmission Date: 20260117
  Serious: Yes (Hospitalization)
  Sender: AMGEN
  Company Number: US-AMGEN-USASP2025236523

PATIENT
  Age: 48 Year
  Sex: Female

DRUGS (5)
  1. PREDNISONE [Suspect]
     Active Substance: PREDNISONE
     Indication: Immunosuppressant drug therapy
     Dosage: UNK
     Route: 065
  2. PREDNISONE [Suspect]
     Active Substance: PREDNISONE
     Indication: Hypercalcaemia
     Dosage: 20 MILLIGRAM, QD
     Route: 065
  3. PREDNISONE [Suspect]
     Active Substance: PREDNISONE
     Dosage: 60 MILLIGRAM, QD
     Route: 065
  4. PREDNISONE [Suspect]
     Active Substance: PREDNISONE
     Dosage: UNK (DOSE WAS GRADUALLY TAPERED)
     Route: 065
  5. XGEVA [Suspect]
     Active Substance: DENOSUMAB
     Indication: Hypercalcaemia
     Dosage: 120 MILLIGRAM
     Route: 058

REACTIONS (10)
  - Respiratory failure [Unknown]
  - Blood 1,25-dihydroxycholecalciferol increased [Unknown]
  - Pneumonia [Unknown]
  - Infectious pleural effusion [Unknown]
  - Coccidioidomycosis [Unknown]
  - Hypercalcaemia [Recovering/Resolving]
  - Blood parathyroid hormone decreased [Unknown]
  - Parathyroid hormone-related protein increased [Unknown]
  - Drug effective for unapproved indication [Unknown]
  - Off label use [Unknown]
